FAERS Safety Report 6907765-5 (Version None)
Quarter: 2010Q3

REPORT INFORMATION
  Report Type: 
  Country: None (occurrence: None)
  Receive Date: 20100716
  Receipt Date: 20090617
  Transmission Date: 20110219
  Serious: Yes (Other)
  Sender: FDA-Public Use
  Company Number: 2009209457

PATIENT
  Sex: Male

DRUGS (1)
  1. CELEBREX [Suspect]
     Dates: start: 20080401

REACTIONS (6)
  - LACRIMATION INCREASED [None]
  - MIDDLE EAR EFFUSION [None]
  - PYREXIA [None]
  - RASH [None]
  - SALIVARY HYPERSECRETION [None]
  - TONGUE ERUPTION [None]
